FAERS Safety Report 4652028-4 (Version None)
Quarter: 2005Q2

REPORT INFORMATION
  Report Type: 
  Country: None (occurrence: None)
  Receive Date: 20050502
  Receipt Date: 20050502
  Transmission Date: 20051028
  Serious: Yes (Other)
  Sender: FDA-Public Use
  Company Number: None

PATIENT
  Sex: Female
  Weight: 103.8737 kg

DRUGS (2)
  1. DIAZEPAM [Suspect]
     Indication: MUSCLE SPASMS
     Dosage: AS ABOVE
  2. DIAZEPAM [Suspect]
     Indication: PAIN
     Dosage: AS ABOVE

REACTIONS (2)
  - DRUG INEFFECTIVE [None]
  - THERAPEUTIC RESPONSE UNEXPECTED WITH DRUG SUBSTITUTION [None]
